FAERS Safety Report 8766247 (Version 1)
Quarter: 2012Q4

REPORT INFORMATION
  Report Type: 
  Country: GB (occurrence: GB)
  Receive Date: 20120904
  Receipt Date: 20120904
  Transmission Date: 20130627
  Serious: Yes (Hospitalization, Other)
  Sender: FDA-Public Use
  Company Number: GB-ROCHE-1004566

PATIENT
  Age: 25 Year
  Sex: Female
  Weight: 63.6 kg

DRUGS (5)
  1. MIRCERA [Suspect]
     Indication: ANAEMIA
     Route: 042
     Dates: start: 20100906, end: 20100907
  2. ALFACALCIDOL [Concomitant]
     Route: 048
     Dates: start: 20100406
  3. LANTHANUM CARBONATE [Concomitant]
     Route: 048
     Dates: start: 20100901
  4. KETOVITE [Concomitant]
     Route: 048
     Dates: start: 20070906
  5. COSMOFER [Concomitant]
     Route: 042
     Dates: start: 20070906

REACTIONS (7)
  - Dizziness [Recovered/Resolved]
  - Vision blurred [Recovered/Resolved]
  - Nausea [Recovered/Resolved]
  - Rash [Recovered/Resolved]
  - Disorientation [Recovered/Resolved]
  - Balance disorder [Recovered/Resolved]
  - Syncope [Recovered/Resolved]
